FAERS Safety Report 17964527 (Version 1)
Quarter: 2020Q2

REPORT INFORMATION
  Report Type: Spontaneous
  Country: FR (occurrence: FR)
  Receive Date: 20200630
  Receipt Date: 20200630
  Transmission Date: 20200714
  Serious: Yes (Hospitalization, Other)
  Sender: FDA-Public Use
  Company Number: FR-SA-2020SA165072

PATIENT

DRUGS (5)
  1. PREDNISOLONE. [Suspect]
     Active Substance: PREDNISOLONE
     Indication: PREMEDICATION
     Dosage: 3 DAYS/CURE
     Route: 048
     Dates: start: 20200107, end: 20200121
  2. OXALIPLATIN. [Suspect]
     Active Substance: OXALIPLATIN
     Indication: COLORECTAL ADENOCARCINOMA
     Dosage: 164 MG
     Route: 042
     Dates: start: 20200107, end: 20200121
  3. TOMUDEX [RALTITREXED] [Suspect]
     Active Substance: RALTITREXED
     Indication: COLORECTAL ADENOCARCINOMA
     Dosage: 3.85 MG
     Route: 042
     Dates: start: 20200107, end: 20200121
  4. ONDANSETRON [Suspect]
     Active Substance: ONDANSETRON
     Indication: PREMEDICATION
     Dosage: 8 MG
     Route: 048
     Dates: start: 20200107, end: 20200121
  5. APREPITANT. [Suspect]
     Active Substance: APREPITANT
     Indication: PREMEDICATION
     Dosage: 3DAYS / CURE
     Route: 048
     Dates: start: 20200107, end: 20200121

REACTIONS (1)
  - Tonic clonic movements [Recovered/Resolved]

NARRATIVE: CASE EVENT DATE: 20200121
